FAERS Safety Report 9698201 (Version 2)
Quarter: 2013Q4

REPORT INFORMATION
  Report Type: Report from Study
  Country: BE (occurrence: BE)
  Receive Date: 20131120
  Receipt Date: 20131120
  Transmission Date: 20140711
  Serious: Yes (Other)
  Sender: FDA-Public Use
  Company Number: BE-BRISTOL-MYERS SQUIBB COMPANY-15690191

PATIENT
  Age: 71 Year
  Sex: Male

DRUGS (3)
  1. ABATACEPT [Suspect]
     Indication: RHEUMATOID ARTHRITIS
     Dosage: ALSO ORAL ROUTE
     Route: 058
     Dates: start: 20110315, end: 20110316
  2. METHOTREXATE [Suspect]
     Indication: RHEUMATOID ARTHRITIS
     Route: 048
     Dates: start: 20110315, end: 20110416
  3. ISONIAZIDE [Suspect]
     Dates: start: 20110214

REACTIONS (2)
  - Pancytopenia [Recovered/Resolved with Sequelae]
  - Hepatic enzyme increased [Recovered/Resolved]
